FAERS Safety Report 5297717-6 (Version None)
Quarter: 2007Q2

REPORT INFORMATION
  Report Type: 
  Country: None (occurrence: None)
  Receive Date: 20070412
  Receipt Date: 20070412
  Transmission Date: 20071010
  Serious: No
  Sender: FDA-Public Use
  Company Number: None

PATIENT
  Sex: Female
  Weight: 13.6 kg

DRUGS (5)
  1. PEG-L-ASPARAGINASE(K-H) [Suspect]
  2. CYTARABINE [Suspect]
     Dosage: 70 MG
  3. DEXAMETHASONE [Suspect]
     Dosage: 44 MG
  4. METHOTREXATE [Suspect]
     Dosage: 12 MG
  5. VINCRISTINE SULFATE [Suspect]
     Dosage: 1.8 MG

REACTIONS (4)
  - ABDOMINAL PAIN [None]
  - ORAL INTAKE REDUCED [None]
  - PALLOR [None]
  - RESPIRATORY ARREST [None]
